FAERS Safety Report 15262787 (Version 1)
Quarter: 2018Q3

REPORT INFORMATION
  Report Type: Spontaneous
  Country: US (occurrence: US)
  Receive Date: 20180720
  Receipt Date: 20180720
  Transmission Date: 20181010
  Serious: No
  Sender: FDA-Public Use
  Company Number: None

PATIENT
  Sex: Female

DRUGS (6)
  1. VITAFUSION VITAMIN D3 [Concomitant]
  2. ZYRTEC [Concomitant]
     Active Substance: CETIRIZINE HYDROCHLORIDE
  3. VITAFUSION WOMEN^S ENERGY METABOLISM + BONE SUPPORT VITAMINS [Concomitant]
  4. SINGULAIR [Concomitant]
     Active Substance: MONTELUKAST SODIUM
  5. VITAFUSION B COMPLEX [Concomitant]
  6. ROLAIDS EXTRA STRENGTH FRUIT [Suspect]
     Active Substance: CALCIUM CARBONATE\MAGNESIUM HYDROXIDE
     Indication: PRODUCT USED FOR UNKNOWN INDICATION
     Dosage: ?          QUANTITY:96 TABLET(S);?
     Route: 048
     Dates: start: 20180702, end: 20180718

REACTIONS (5)
  - Gastrointestinal disorder [None]
  - Dry mouth [None]
  - Tongue discomfort [None]
  - Product quality issue [None]
  - Throat irritation [None]

NARRATIVE: CASE EVENT DATE: 20180718
